FAERS Safety Report 23278773 (Version 1)
Quarter: 2023Q4

REPORT INFORMATION
  Report Type: Spontaneous
  Country: JP (occurrence: JP)
  Receive Date: 20231208
  Receipt Date: 20231208
  Transmission Date: 20240109
  Serious: Yes (Death, Hospitalization)
  Sender: FDA-Public Use
  Company Number: JP-Eisai-202300609_LEN-TMC_P_1

PATIENT
  Age: 67 Year
  Sex: Male

DRUGS (1)
  1. LENVIMA [Suspect]
     Active Substance: LENVATINIB
     Indication: Thymic carcinoma
     Dosage: THE DOSE WAS INCREASED OR DECREASED AS APPROPRIATE.
     Route: 048
     Dates: start: 201705, end: 202206

REACTIONS (1)
  - Angina pectoris [Fatal]

NARRATIVE: CASE EVENT DATE: 20220601
